FAERS Safety Report 6525388-7 (Version None)
Quarter: 2010Q1

REPORT INFORMATION
  Report Type: 
  Country: None (occurrence: None)
  Receive Date: 20100104
  Receipt Date: 20091223
  Transmission Date: 20100710
  Serious: Yes (Death, Hospitalization)
  Sender: FDA-Public Use
  Company Number: CHNY2007GB04109

PATIENT
  Age: 25 Year
  Sex: Male

DRUGS (11)
  1. CO-TRIMOXAZOLE (NGX) [Suspect]
     Indication: PROPHYLAXIS
  2. CLARITHROMYCIN [Suspect]
     Indication: CHEST DISCOMFORT
     Dosage: 250 MG, UNK
  3. CIPROFLOXACIN [Suspect]
     Indication: CHEST DISCOMFORT
     Dosage: 250 MG, UNK
  4. IBUPROFEN [Suspect]
     Indication: PAIN IN EXTREMITY
     Dosage: 200 MG, UNK
     Route: 048
  5. COMBIVIR [Suspect]
  6. EFAVIRENZ [Suspect]
  7. LAMIVUDINE [Suspect]
  8. NEVIRAPINE [Suspect]
  9. TENOFOVIR [Suspect]
  10. LOPERAMIDE [Concomitant]
  11. BACTRIM [Concomitant]
     Indication: PROPHYLAXIS

REACTIONS (16)
  - AGITATION [None]
  - ALANINE AMINOTRANSFERASE INCREASED [None]
  - BIOPSY BILE DUCT ABNORMAL [None]
  - BIOPSY LIVER ABNORMAL [None]
  - BLOOD BILIRUBIN INCREASED [None]
  - CD4 LYMPHOCYTES DECREASED [None]
  - CONFUSIONAL STATE [None]
  - COUGH [None]
  - HEPATIC ENZYME ABNORMAL [None]
  - INFLAMMATION [None]
  - PAIN IN EXTREMITY [None]
  - PYREXIA [None]
  - SCLERAL DISCOLOURATION [None]
  - SEPSIS [None]
  - VANISHING BILE DUCT SYNDROME [None]
  - VOMITING [None]
